FAERS Safety Report 9816298 (Version 1)
Quarter: 2014Q1

REPORT INFORMATION
  Report Type: Spontaneous
  Country: US (occurrence: US)
  Receive Date: 20140114
  Receipt Date: 20140114
  Transmission Date: 20141002
  Serious: Yes (Other)
  Sender: FDA-Public Use
  Company Number: US-RB-061954-14

PATIENT
  Age: 63 Year
  Sex: Female

DRUGS (3)
  1. MUCINEX DM MAXIMUM STRENGTH [Suspect]
     Dosage: TOOK 1 TABLET ORALLY ON 03-JAN-2014
     Route: 048
     Dates: start: 20140103
  2. MUCINEX DM MAXIMUM STRENGTH [Suspect]
     Dosage: TOOK 1 TABLET ORALLY ON 03-JAN-2014
     Route: 048
     Dates: start: 20140103
  3. MUCINEX DM MAXIMUM STRENGTH [Suspect]
     Dosage: TOOK 1 TABLET ORALLY ON 03-JAN-2014
     Route: 048
     Dates: start: 20140103

REACTIONS (4)
  - Lymphadenopathy [Not Recovered/Not Resolved]
  - Swollen tongue [Not Recovered/Not Resolved]
  - Glossodynia [Not Recovered/Not Resolved]
  - Condition aggravated [Not Recovered/Not Resolved]
